FAERS Safety Report 9055131 (Version 2)
Quarter: 2013Q1

REPORT INFORMATION
  Report Type: Spontaneous
  Country: US (occurrence: US)
  Receive Date: 20130206
  Receipt Date: 20130228
  Transmission Date: 20140127
  Serious: No
  Sender: FDA-Public Use
  Company Number: US-JNJFOC-20130116811

PATIENT
  Age: 70 None
  Sex: Female
  Weight: 111.59 kg

DRUGS (12)
  1. XARELTO [Suspect]
     Indication: CARDIOVERSION
     Route: 048
     Dates: start: 20121219
  2. XARELTO [Suspect]
     Indication: ATRIAL FLUTTER
     Route: 048
     Dates: start: 20121219
  3. DIOVAN [Concomitant]
     Route: 065
  4. HCTZ [Concomitant]
     Route: 065
  5. LEVOTHYROXINE [Concomitant]
     Route: 065
  6. ADVAIR [Concomitant]
     Route: 065
  7. VITAMIN [Concomitant]
     Route: 065
  8. PRO AIR [Concomitant]
     Route: 065
  9. VITAMIN D [Concomitant]
     Route: 065
  10. VITAMIN B12 [Concomitant]
     Route: 065
  11. CALCIUM [Concomitant]
     Route: 065
  12. ASPIRIN [Concomitant]
     Route: 065

REACTIONS (1)
  - Paraesthesia [Recovered/Resolved]
